FAERS Safety Report 6163741-4 (Version None)
Quarter: 2009Q2

REPORT INFORMATION
  Report Type: 
  Country: None (occurrence: None)
  Receive Date: 20090420
  Receipt Date: 20090420
  Transmission Date: 20091009
  Serious: Yes (Life-Threatening, Hospitalization)
  Sender: FDA-Public Use
  Company Number: None

PATIENT
  Age: 60 Year
  Sex: Female
  Weight: 90.7194 kg

DRUGS (7)
  1. GLYBURIDE [Suspect]
     Indication: DIABETES MELLITUS
     Dosage: 4 1/2 MG PO DAILY (THERAPY DATES: PRIOR TO ADMIT)
     Route: 048
  2. FOSINOPRIL SODIUM [Concomitant]
  3. MELOXICAM [Concomitant]
  4. ALLOPURINOL [Concomitant]
  5. FUROSEMIDE [Concomitant]
  6. CELEBREX [Concomitant]
  7. WARFARIN [Concomitant]

REACTIONS (1)
  - HYPOGLYCAEMIA [None]
